FAERS Safety Report 7908465-5 (Version None)
Quarter: 2011Q4

REPORT INFORMATION
  Report Type: 
  Country: None (occurrence: None)
  Receive Date: 20111111
  Receipt Date: 20111102
  Transmission Date: 20120403
  Serious: Yes (Hospitalization, Other)
  Sender: FDA-Public Use
  Company Number: FR-JNJFOC-20111103012

PATIENT
  Age: 56 Year
  Sex: Female

DRUGS (10)
  1. TRAZODONE HCL [Suspect]
     Route: 030
     Dates: start: 20111009
  2. RISPERDAL [Suspect]
     Route: 048
     Dates: end: 20110915
  3. TRAZODONE HCL [Suspect]
     Route: 030
     Dates: start: 20110929, end: 20111009
  4. TRAZODONE HCL [Suspect]
     Route: 030
     Dates: start: 20110917, end: 20110929
  5. TRAZODONE HCL [Suspect]
     Indication: FRONTOTEMPORAL DEMENTIA
     Route: 030
     Dates: start: 20110907, end: 20110917
  6. RISPERDAL [Suspect]
     Indication: PRODUCT USED FOR UNKNOWN INDICATION
     Route: 048
     Dates: start: 20110601
  7. TERCIAN [Concomitant]
     Route: 065
  8. RISPERDAL [Suspect]
     Route: 048
     Dates: start: 20110801
  9. ALPRAZOLAM [Concomitant]
     Route: 065
  10. PRAVASTATIN [Concomitant]
     Route: 048

REACTIONS (3)
  - EPILEPSY [None]
  - LOSS OF CONSCIOUSNESS [None]
  - DYSKINESIA [None]
